FAERS Safety Report 7480447-X (Version None)
Quarter: 2011Q2

REPORT INFORMATION
  Report Type: 
  Country: None (occurrence: None)
  Receive Date: 20110516
  Receipt Date: 20110502
  Transmission Date: 20111010
  Serious: Yes (Hospitalization)
  Sender: FDA-Public Use
  Company Number: CA-ELI_LILLY_AND_COMPANY-CA201103004831

PATIENT
  Age: 83 Year
  Sex: Female

DRUGS (13)
  1. FORTEO [Suspect]
     Dosage: 20 UG, QD
     Route: 058
     Dates: end: 20110331
  2. FORTEO [Suspect]
     Indication: OSTEOPOROSIS
     Dosage: 20 UG, DAILY (1/D)
     Route: 058
     Dates: start: 20101203
  3. TYLENOL (CAPLET) [Concomitant]
  4. DOVONEX [Concomitant]
  5. APO-GLICLAZIDE [Concomitant]
  6. NOVO-GESIC [Concomitant]
  7. PIOGLITAZONE [Concomitant]
  8. SULFASALAZINE [Concomitant]
  9. OMEPRAZOLE [Concomitant]
  10. CRESTOR [Concomitant]
  11. RAMIPRIL [Concomitant]
  12. CALCIUM [Concomitant]
  13. VITAMIN D [Concomitant]

REACTIONS (6)
  - ABDOMINAL PAIN [None]
  - DIARRHOEA [None]
  - ADVERSE EVENT [None]
  - INSOMNIA [None]
  - DECREASED APPETITE [None]
  - CONSTIPATION [None]
